FAERS Safety Report 6197717-8 (Version None)
Quarter: 2009Q2

REPORT INFORMATION
  Report Type: 
  Country: None (occurrence: None)
  Receive Date: 20090521
  Receipt Date: 20090511
  Transmission Date: 20091009
  Serious: Yes (Life-Threatening, Hospitalization, Other)
  Sender: FDA-Public Use
  Company Number: IN-PFIZER INC-2008031631

PATIENT
  Age: 55 Year

DRUGS (14)
  1. BLINDED *PLACEBO [Suspect]
     Indication: COLORECTAL CANCER METASTATIC
     Dosage: UNK
     Route: 048
     Dates: start: 20080311, end: 20080408
  2. BLINDED SUNITINIB MALATE [Suspect]
     Indication: COLORECTAL CANCER METASTATIC
     Dosage: UNK
     Route: 048
     Dates: start: 20080311, end: 20080408
  3. IRINOTECAN HCL [Suspect]
     Indication: COLORECTAL CANCER METASTATIC
     Dosage: 1 EVERY 2 WEEKS
     Route: 042
     Dates: start: 20080311, end: 20080328
  4. FLUOROURACIL [Suspect]
     Indication: COLORECTAL CANCER METASTATIC
     Dosage: 1 EVERY 2 WEEKS
     Route: 042
     Dates: start: 20080311, end: 20080330
  5. FLUOROURACIL [Suspect]
     Dosage: EVERY 2 WEEKS
     Route: 042
     Dates: start: 20080311, end: 20080328
  6. LEUCOVORIN CALCIUM [Suspect]
     Indication: COLORECTAL CANCER METASTATIC
     Dosage: 1 EVERY 2 WEEKS
     Route: 042
     Dates: start: 20080311, end: 20080328
  7. LOPERAMIDE HCL [Concomitant]
     Route: 048
     Dates: start: 20080328, end: 20080329
  8. GRANISETRON HCL [Concomitant]
     Route: 048
     Dates: start: 20080330, end: 20080403
  9. PANTOPRAZOLE SODIUM [Concomitant]
     Route: 048
     Dates: start: 20080331, end: 20080404
  10. LORAZEPAM [Concomitant]
     Route: 048
     Dates: start: 20080330, end: 20080403
  11. SPARFLOXACIN [Concomitant]
     Route: 048
     Dates: start: 20080403, end: 20080409
  12. AUGMENTIN '125' [Concomitant]
     Route: 048
     Dates: start: 20080403, end: 20080409
  13. BECOSULES Z [Concomitant]
     Route: 048
     Dates: start: 20080403, end: 20080409
  14. POVIDONE IODINE [Concomitant]
     Dates: start: 20080403

REACTIONS (2)
  - FEBRILE NEUTROPENIA [None]
  - HYPOKALAEMIA [None]
